FAERS Safety Report 11748427 (Version 7)
Quarter: 2020Q1

REPORT INFORMATION
  Report Type: Spontaneous
  Country: US (occurrence: US)
  Receive Date: 20151117
  Receipt Date: 20200221
  Transmission Date: 20200409
  Serious: Yes (Other)
  Sender: FDA-Public Use
  Company Number: US-PFIZER INC-2015392113

PATIENT
  Age: 65 Year
  Sex: Female

DRUGS (1)
  1. SERTRALINE HCL [Suspect]
     Active Substance: SERTRALINE HYDROCHLORIDE
     Dosage: UNK

REACTIONS (20)
  - Cardiac disorder [Unknown]
  - Dyspnoea [Unknown]
  - Social avoidant behaviour [Unknown]
  - Angina pectoris [Unknown]
  - Product substitution issue [Unknown]
  - Drug ineffective [Unknown]
  - Depression [Unknown]
  - Suicidal ideation [Unknown]
  - Stress [Unknown]
  - Malaise [Unknown]
  - Agitation [Unknown]
  - Hypervigilance [Unknown]
  - Fatigue [Unknown]
  - Cough [Unknown]
  - Restless legs syndrome [Unknown]
  - Emotional disorder [Unknown]
  - Psychomotor hyperactivity [Unknown]
  - Anger [Unknown]
  - Body height decreased [Unknown]
  - Chest discomfort [Unknown]
